FAERS Safety Report 6628262-0 (Version None)
Quarter: 2010Q1

REPORT INFORMATION
  Report Type: 
  Country: None (occurrence: None)
  Receive Date: 20100311
  Receipt Date: 20100308
  Transmission Date: 20100710
  Serious: Yes (Life-Threatening, Other)
  Sender: FDA-Public Use
  Company Number: GB-ASTRAZENECA-2010SE09945

PATIENT
  Age: 65 Year
  Sex: Male
  Weight: 75 kg

DRUGS (9)
  1. LIDOCAINE [Suspect]
     Indication: RHEUMATOID ARTHRITIS
     Route: 014
     Dates: start: 20100216, end: 20100216
  2. DEPO-MEDROL [Suspect]
     Indication: RHEUMATOID ARTHRITIS
     Route: 014
     Dates: start: 20100216, end: 20100216
  3. BISOPROLOL [Concomitant]
     Indication: MYOCARDIAL ISCHAEMIA
     Route: 048
     Dates: start: 20100216
  4. EZETIMIBE [Concomitant]
  5. FOLIC ACID [Concomitant]
  6. METHOTREXATE [Concomitant]
     Indication: RHEUMATOID ARTHRITIS
     Route: 048
     Dates: start: 20100216
  7. MONOMIL XL [Concomitant]
     Route: 048
     Dates: start: 20100216
  8. RABEPRAZOLE SODIUM [Concomitant]
     Route: 048
  9. STATIN NOS [Concomitant]

REACTIONS (1)
  - ANAPHYLACTIC REACTION [None]
